FAERS Safety Report 10581193 (Version 1)
Quarter: 2014Q4

REPORT INFORMATION
  Report Type: Spontaneous
  Country: DE (occurrence: DE)
  Receive Date: 20141113
  Receipt Date: 20141113
  Transmission Date: 20150529
  Serious: Yes (Congenital Anomaly, Other)
  Sender: FDA-Public Use
  Company Number: DE-UCBSA-2014017358

PATIENT
  Age: 0 Year
  Sex: Male
  Weight: 2.52 kg

DRUGS (2)
  1. KEPPRA [Suspect]
     Active Substance: LEVETIRACETAM
     Indication: EPILEPSY
     Dosage: DOSE: 500 MG/DAY
     Route: 064
     Dates: start: 20121217, end: 20130828
  2. ERGENYL CHRONO [Suspect]
     Active Substance: VALPROIC ACID
     Indication: EPILEPSY
     Dosage: DOSE: 1000 MG/DAY
     Route: 064
     Dates: start: 20121217, end: 20130828

REACTIONS (7)
  - Foetal anticonvulsant syndrome [Not Recovered/Not Resolved]
  - Patent ductus arteriosus [Unknown]
  - Atrial septal defect [Unknown]
  - Adrenal haemorrhage [Unknown]
  - Foetal exposure during pregnancy [Unknown]
  - Neonatal respiratory distress syndrome [Recovered/Resolved]
  - Small for dates baby [Recovered/Resolved]

NARRATIVE: CASE EVENT DATE: 20121217
